FAERS Safety Report 8553842-5 (Version None)
Quarter: 2012Q3

REPORT INFORMATION
  Report Type: 
  Country: None (occurrence: None)
  Receive Date: 20120731
  Receipt Date: 20120720
  Transmission Date: 20120928
  Serious: Yes (Other)
  Sender: FDA-Public Use
  Company Number: US-ELI_LILLY_AND_COMPANY-US201108000884

PATIENT
  Sex: Female

DRUGS (23)
  1. FORTEO [Suspect]
     Dosage: 20 UG, QD
     Route: 065
     Dates: start: 20110701, end: 20120712
  2. CENTRUM [Concomitant]
     Dosage: UNK
  3. VITAMIN D [Concomitant]
     Dosage: UNK
  4. DURAGESIC-100 [Concomitant]
     Dosage: UNK
  5. FLONASE [Concomitant]
     Dosage: UNK
  6. ABILIFY [Concomitant]
     Dosage: UNK
  7. SYNTHROID [Concomitant]
     Dosage: UNK
  8. CELEBREX [Concomitant]
     Dosage: UNK
  9. FOLIC ACID [Concomitant]
     Dosage: UNK
  10. ASCORBIC ACID [Concomitant]
     Dosage: UNK
  11. ATENOLOL [Concomitant]
     Dosage: UNK
  12. FOLIC ACID W/VITAMIN B COMPLEX [Concomitant]
     Dosage: UNK
  13. PREMPRO [Concomitant]
     Dosage: UNK
     Dates: end: 20120401
  14. ACIPHEX [Concomitant]
     Dosage: UNK
  15. DIOVAN [Concomitant]
     Dosage: UNK
  16. CYMBALTA [Concomitant]
     Indication: FIBROMYALGIA
     Dosage: 120 MG, QD
  17. VITAMIN B6 [Concomitant]
     Dosage: UNK
  18. DEPLIN [Concomitant]
     Dosage: UNK
  19. PROVIGIL [Concomitant]
     Dosage: UNK
  20. TRAZODONE HYDROCHLORIDE [Concomitant]
     Dosage: UNK
  21. ALLEGRA-D 12 HOUR [Concomitant]
     Dosage: UNK, BID
  22. FORTEO [Suspect]
     Indication: OSTEOPOROSIS
     Dosage: 20 UG, QD
     Route: 065
     Dates: start: 20110715
  23. PERCOCET [Concomitant]
     Dosage: UNK

REACTIONS (9)
  - BURNING SENSATION [None]
  - INJECTION SITE PAIN [None]
  - MUSCLE SPASMS [None]
  - BREAST CANCER [None]
  - ABDOMINAL PAIN UPPER [None]
  - INJURY ASSOCIATED WITH DEVICE [None]
  - SCIATICA [None]
  - FIBROMYALGIA [None]
  - SPEECH DISORDER [None]
